FAERS Safety Report 21467227 (Version 1)
Quarter: 2022Q4

REPORT INFORMATION
  Report Type: Spontaneous
  Country: DE (occurrence: DE)
  Receive Date: 20221017
  Receipt Date: 20221017
  Transmission Date: 20230113
  Serious: Yes (Life-Threatening, Congenital Anomaly)
  Sender: FDA-Public Use
  Company Number: DE-NOVARTISPH-NVSC2022DE232718

PATIENT
  Age: 1 Day
  Sex: Male
  Weight: 3.16 kg

DRUGS (5)
  1. AMLODIPINE BESYLATE\HYDROCHLOROTHIAZIDE\VALSARTAN [Suspect]
     Active Substance: AMLODIPINE BESYLATE\HYDROCHLOROTHIAZIDE\VALSARTAN
     Indication: Foetal exposure during pregnancy
     Dosage: (MATERNAL DOSE: UNK, (CONFUSION WITH OTHER DRUG), (6. - 23. GESTATIONAL WEEK)
     Route: 064
  2. AMLODIPINE BESYLATE\HYDROCHLOROTHIAZIDE\VALSARTAN [Suspect]
     Active Substance: AMLODIPINE BESYLATE\HYDROCHLOROTHIAZIDE\VALSARTAN
     Dosage: (MATERNAL DOSE: 5 (MG/D) / 160 (MG/D) / 12.5 (MG/D) (0. - 6. GESTATIONAL WEEK)
     Route: 064
  3. XIPAMIDE [Concomitant]
     Active Substance: XIPAMIDE
     Indication: Foetal exposure during pregnancy
     Dosage: (MATERNAL DOSE: 10 MG, QD (10 [MG/D] (0. - 22.3. GESTATIONAL WEEK)
     Route: 062
  4. METOPROLOL [Concomitant]
     Active Substance: METOPROLOL
     Indication: Foetal exposure during pregnancy
     Dosage: (MATERNAL DOSE: 95 MG, QD (95 [MG/D] 2 SEPARATED DOSES (0. - 29.4. GESTATIONAL WEEK)
     Route: 064
  5. METHYLDOPA [Concomitant]
     Active Substance: METHYLDOPA
     Indication: Foetal exposure during pregnancy
     Dosage: (MATERNAL DOSE: 500 MG, QD (500 [MG/D (2X250)] (34.4. - 36.6. GESTATIONAL WEEK)
     Route: 064

REACTIONS (2)
  - Congenital renal disorder [Not Recovered/Not Resolved]
  - Foetal exposure during pregnancy [Unknown]

NARRATIVE: CASE EVENT DATE: 20210401
